FAERS Safety Report 20163911 (Version 1)
Quarter: 2021Q4

REPORT INFORMATION
  Report Type: Spontaneous
  Country: DE (occurrence: DE)
  Receive Date: 20211209
  Receipt Date: 20211209
  Transmission Date: 20220303
  Serious: Yes (Hospitalization)
  Sender: FDA-Public Use
  Company Number: DE-ALKEM LABORATORIES LIMITED-DE-ALKEM-2021-07468

PATIENT
  Age: 57 Year
  Sex: Male

DRUGS (16)
  1. PREGABALIN [Suspect]
     Active Substance: PREGABALIN
     Indication: Product used for unknown indication
     Dosage: UNK
     Route: 065
  2. HYDROCORTISONE [Suspect]
     Active Substance: HYDROCORTISONE
     Indication: Product used for unknown indication
     Dosage: 1000 MILLIGRAM, QD
     Route: 042
     Dates: start: 20200206, end: 20200210
  3. HYDROCORTISONE [Suspect]
     Active Substance: HYDROCORTISONE
     Dosage: UNK
     Route: 037
     Dates: start: 20211025, end: 20211108
  4. DIMETHINDENE MALEATE [Suspect]
     Active Substance: DIMETHINDENE MALEATE
     Indication: Product used for unknown indication
     Dosage: UNK
     Route: 065
  5. OCREVUS [Suspect]
     Active Substance: OCRELIZUMAB
     Indication: Relapsing-remitting multiple sclerosis
     Dosage: UNK
     Route: 042
     Dates: start: 20180308
  6. OCREVUS [Suspect]
     Active Substance: OCRELIZUMAB
     Indication: Primary progressive multiple sclerosis
     Dosage: 300 MILLIGRAM, EVERY 2 WEEKS
     Route: 042
     Dates: start: 20180222
  7. OCREVUS [Suspect]
     Active Substance: OCRELIZUMAB
     Dosage: 600 MILLIGRAM
     Route: 042
     Dates: start: 20180913, end: 20180913
  8. OCREVUS [Suspect]
     Active Substance: OCRELIZUMAB
     Dosage: 600 MILLIGRAM
     Route: 042
     Dates: start: 20190902
  9. OCREVUS [Suspect]
     Active Substance: OCRELIZUMAB
     Dosage: 600 MILLIGRAM
     Route: 042
     Dates: start: 20190315
  10. OCREVUS [Suspect]
     Active Substance: OCRELIZUMAB
     Dosage: 600 MILLIGRAM
     Route: 042
     Dates: start: 20200218
  11. OCREVUS [Suspect]
     Active Substance: OCRELIZUMAB
     Dosage: 600 MILLIGRAM, EVERY 188 DAY
     Route: 042
     Dates: start: 20201014
  12. Baclofen [Baclofen] [Concomitant]
     Indication: Muscle spasticity
     Dosage: 15 MILLIGRAM, EVERY 0.33 DAY
     Route: 048
  13. Baclofen [Baclofen] [Concomitant]
     Dosage: 15 MILLIGRAM, EVERY 0.33 DAY
     Route: 048
  14. Botox [Botulinum Toxin Type A] [Concomitant]
     Indication: Muscle spasticity
     Dosage: UNK EVERY 3 MONTH
     Route: 065
  15. Duloxetine [Duloxetine] [Concomitant]
     Indication: Product used for unknown indication
     Dosage: 90 MILLIGRAM
     Route: 065
  16. IBUPROFEN [Concomitant]
     Active Substance: IBUPROFEN
     Indication: Product used for unknown indication
     Dosage: UNK
     Route: 065

REACTIONS (19)
  - Clavicle fracture [Recovering/Resolving]
  - Multiple sclerosis [Not Recovered/Not Resolved]
  - Peroneal nerve palsy [Recovering/Resolving]
  - Rib fracture [Recovering/Resolving]
  - Upper limb fracture [Recovering/Resolving]
  - Pelvic fracture [Recovering/Resolving]
  - Road traffic accident [Unknown]
  - Muscle spasticity [Recovering/Resolving]
  - Asthenia [Recovered/Resolved]
  - Nasopharyngitis [Recovered/Resolved]
  - Erythema [Recovered/Resolved]
  - Initial insomnia [Recovered/Resolved]
  - Neck pain [Not Recovered/Not Resolved]
  - Balance disorder [Recovered/Resolved]
  - Swelling face [Recovered/Resolved]
  - Fatigue [Recovered/Resolved]
  - Headache [Not Recovered/Not Resolved]
  - Liver function test increased [Not Recovered/Not Resolved]
  - Arthralgia [Not Recovered/Not Resolved]

NARRATIVE: CASE EVENT DATE: 20180222
